FAERS Safety Report 7955444-8 (Version None)
Quarter: 2011Q4

REPORT INFORMATION
  Report Type: 
  Country: None (occurrence: None)
  Receive Date: 20111202
  Receipt Date: 20111123
  Transmission Date: 20120403
  Serious: Yes (Other)
  Sender: FDA-Public Use
  Company Number: US-US-EMD SERONO, INC.-7053349

PATIENT
  Sex: Female

DRUGS (1)
  1. REBIF [Suspect]
     Indication: MULTIPLE SCLEROSIS
     Route: 058
     Dates: start: 20100426

REACTIONS (7)
  - HEADACHE [None]
  - PAIN [None]
  - BALANCE DISORDER [None]
  - DYSPHAGIA [None]
  - INJECTION SITE ERYTHEMA [None]
  - TREMOR [None]
  - DEPRESSION [None]
